FAERS Safety Report 8247875 (Version 2)
Quarter: 2013Q2

REPORT INFORMATION
  Report Type: Spontaneous
  Country: US (occurrence: US)
  Receive Date: 20111116
  Receipt Date: 20130531
  Transmission Date: 20140414
  Serious: Yes (Other)
  Sender: FDA-Public Use
  Company Number: PHEH2011US008971

PATIENT
  Sex: Female

DRUGS (2)
  1. AREDIA [Suspect]
  2. TAMOXIFEN [Concomitant]

REACTIONS (7)
  - Skin cancer [Unknown]
  - Osteitis deformans [Unknown]
  - Lipoma [Unknown]
  - Leukopenia [Unknown]
  - Anaemia [Unknown]
  - Joint range of motion decreased [Unknown]
  - Wound [Recovering/Resolving]
